FAERS Safety Report 5469060-3 (Version None)
Quarter: 2007Q3

REPORT INFORMATION
  Report Type: 
  Country: None (occurrence: None)
  Receive Date: 20070820
  Receipt Date: 20070712
  Transmission Date: 20080115
  Serious: No
  Sender: FDA-Public Use
  Company Number: WAES 0707USA01932

PATIENT
  Age: 66 Year
  Sex: Female

DRUGS (7)
  1. JANUVIA [Suspect]
     Indication: BLOOD GLUCOSE
     Dosage: 100 MG/DAILY/PO
     Route: 048
     Dates: start: 20070612
  2. AMARYL [Concomitant]
  3. BENICAR [Concomitant]
  4. CARDIZEM [Concomitant]
  5. CRESTOR [Concomitant]
  6. LANOXIN [Concomitant]
  7. TRICOR [Concomitant]

REACTIONS (1)
  - BLOOD GLUCOSE INCREASED [None]
